FAERS Safety Report 11938564 (Version 1)
Quarter: 2016Q1

REPORT INFORMATION
  Report Type: Spontaneous
  Country: VE (occurrence: VE)
  Receive Date: 20160122
  Receipt Date: 20160122
  Transmission Date: 20160526
  Serious: Yes (Other)
  Sender: FDA-Public Use
  Company Number: VE-GLAXOSMITHKLINE-VE2016GSK004515

PATIENT
  Sex: Male
  Weight: 60 kg

DRUGS (1)
  1. LAMICTAL [Suspect]
     Active Substance: LAMOTRIGINE
     Indication: EPILEPSY
     Dosage: 50 MG IN THE MORNINGS AND 100 MG IN THE AFTERNOONS
     Route: 048
     Dates: start: 2014

REACTIONS (2)
  - Seizure [Unknown]
  - Drug ineffective [Unknown]
